FAERS Safety Report 15823730 (Version 11)
Quarter: 2020Q2

REPORT INFORMATION
  Report Type: Spontaneous
  Country: US (occurrence: US)
  Receive Date: 20190114
  Receipt Date: 20200629
  Transmission Date: 20200713
  Serious: Yes (Other)
  Sender: FDA-Public Use
  Company Number: US-PFIZER INC-2019017920

PATIENT
  Age: 80 Year
  Sex: Female
  Weight: 50 kg

DRUGS (6)
  1. TOVIAZ [Suspect]
     Active Substance: FESOTERODINE FUMARATE
     Dosage: 4 MG, UNK
     Dates: start: 201901
  2. TOVIAZ [Suspect]
     Active Substance: FESOTERODINE FUMARATE
     Dosage: 4 MG, 1X/DAY
     Dates: start: 2019
  3. TOVIAZ [Suspect]
     Active Substance: FESOTERODINE FUMARATE
     Dosage: UNK
  4. TOVIAZ [Suspect]
     Active Substance: FESOTERODINE FUMARATE
     Indication: BLADDER DISORDER
     Dosage: 12 MG, 1X/DAY
     Route: 048
  5. TOVIAZ [Suspect]
     Active Substance: FESOTERODINE FUMARATE
     Indication: URINARY INCONTINENCE
     Dosage: 4 MG, DAILY
     Dates: start: 2018
  6. ESTRADIOL. [Concomitant]
     Active Substance: ESTRADIOL
     Dosage: 0.5 MG, UNK

REACTIONS (9)
  - Back pain [Unknown]
  - Therapeutic product effect incomplete [Unknown]
  - Contraindicated product administered [Unknown]
  - Pain [Recovered/Resolved]
  - Glaucoma [Unknown]
  - Intentional product misuse [Unknown]
  - Disease recurrence [Unknown]
  - Off label use [Not Recovered/Not Resolved]
  - Expired product administered [Unknown]

NARRATIVE: CASE EVENT DATE: 2019
